FAERS Safety Report 11884394 (Version 1)
Quarter: 2016Q1

REPORT INFORMATION
  Report Type: Report from Study
  Country: NL (occurrence: NL)
  Receive Date: 20160103
  Receipt Date: 20160103
  Transmission Date: 20160526
  Serious: Yes (Death)
  Sender: FDA-Public Use
  Company Number: PHHY2015NL171442

PATIENT
  Sex: Male

DRUGS (1)
  1. ZOMETA [Suspect]
     Active Substance: ZOLEDRONIC ACID
     Indication: OSTEOPOROSIS
     Dosage: 4 MG, (ONCE EVERY 52 WEEKS)
     Route: 042
     Dates: start: 20130108

REACTIONS (3)
  - Death [Fatal]
  - Product use issue [Unknown]
  - Inappropriate schedule of drug administration [Unknown]
